FAERS Safety Report 18418870 (Version 1)
Quarter: 2020Q4

REPORT INFORMATION
  Report Type: Spontaneous
  Country: US (occurrence: US)
  Receive Date: 20201022
  Receipt Date: 20201022
  Transmission Date: 20210114
  Serious: Yes (Hospitalization, Other)
  Sender: FDA-Public Use
  Company Number: None

PATIENT
  Age: 54 Year
  Sex: Female

DRUGS (7)
  1. MONTELUKAST [Concomitant]
     Active Substance: MONTELUKAST SODIUM
  2. ESCITALOPRAM [Concomitant]
     Active Substance: ESCITALOPRAM OXALATE
  3. LISINOPRIL. [Concomitant]
     Active Substance: LISINOPRIL
  4. TRAZODONE [Concomitant]
     Active Substance: TRAZODONE HYDROCHLORIDE
  5. ENBREL [Concomitant]
     Active Substance: ETANERCEPT
  6. CHLORDIAZEP [Concomitant]
  7. TALTZ [Suspect]
     Active Substance: IXEKIZUMAB
     Indication: PSORIATIC ARTHROPATHY
     Dosage: OTHER FREQUENCY:UNKNOWN;?
     Route: 058

REACTIONS (1)
  - Condition aggravated [None]

NARRATIVE: CASE EVENT DATE: 20200924
